FAERS Safety Report 21042718 (Version 1)
Quarter: 2022Q3

REPORT INFORMATION
  Report Type: Spontaneous
  Country: US (occurrence: US)
  Receive Date: 20220705
  Receipt Date: 20220705
  Transmission Date: 20221027
  Serious: Yes (Hospitalization, Other)
  Sender: FDA-Public Use
  Company Number: US-SA-SAC20220704000374

PATIENT
  Sex: Female

DRUGS (19)
  1. AUBAGIO [Suspect]
     Active Substance: TERIFLUNOMIDE
     Indication: Multiple sclerosis
     Dosage: 1 DF, QD
     Route: 048
  2. ALBUTEROL SULFATE [Concomitant]
     Active Substance: ALBUTEROL SULFATE
  3. AMLODIPINE [Concomitant]
     Active Substance: AMLODIPINE BESYLATE
  4. BREO ELLIPTA [Concomitant]
     Active Substance: FLUTICASONE FUROATE\VILANTEROL TRIFENATATE
  5. GABAPENTIN [Concomitant]
     Active Substance: GABAPENTIN
  6. HYDROXYZINE [Concomitant]
     Active Substance: HYDROXYZINE HYDROCHLORIDE
  7. OXYBUTYNIN [Concomitant]
     Active Substance: OXYBUTYNIN
  8. TIZANIDINE [Concomitant]
     Active Substance: TIZANIDINE
  9. ONDANSETRON [Concomitant]
     Active Substance: ONDANSETRON
  10. PRAVASTATIN [Concomitant]
     Active Substance: PRAVASTATIN
  11. PRAZOSIN HYDROCHLORIDE [Concomitant]
     Active Substance: PRAZOSIN HYDROCHLORIDE
  12. PRIMIDONE [Concomitant]
     Active Substance: PRIMIDONE
  13. PROMETHAZINE [Concomitant]
     Active Substance: PROMETHAZINE HYDROCHLORIDE
  14. SPIRIVA [Concomitant]
     Active Substance: TIOTROPIUM BROMIDE MONOHYDRATE
  15. SUMATRIPTAN [Concomitant]
     Active Substance: SUMATRIPTAN
  16. CHLORTHALIDONE [Concomitant]
     Active Substance: CHLORTHALIDONE
  17. VITAMINS NOS [Concomitant]
     Active Substance: VITAMINS
  18. PROCTOZONE-H [Concomitant]
  19. KLOR-CON M20 [Concomitant]
     Active Substance: POTASSIUM CHLORIDE

REACTIONS (2)
  - Kidney infection [Recovered/Resolved]
  - Pneumonia [Recovered/Resolved]
